FAERS Safety Report 9248802 (Version 1)
Quarter: 2013Q1

REPORT INFORMATION
  Report Type: Spontaneous
  Country: US (occurrence: None)
  Receive Date: 20130305
  Receipt Date: 20130305
  Transmission Date: 20140127
  Serious: Yes (Other)
  Sender: FDA-Public Use
  Company Number: 163-21880-12063469 (0)

PATIENT
  Age: 63 Year
  Sex: Female

DRUGS (4)
  1. REVLIMID [Suspect]
     Indication: PLASMA CELL MYELOMA
     Route: 048
     Dates: start: 20120516, end: 20120620
  2. PRILOSEC [Concomitant]
  3. ZOMETA (ZOLEDRONIC ACID) [Concomitant]
  4. COUMADIN (WARFARIN) [Concomitant]

REACTIONS (4)
  - Angioedema [None]
  - Pruritus [None]
  - Skin irritation [None]
  - Dry throat [None]
